FAERS Safety Report 5452994-3 (Version None)
Quarter: 2007Q3

REPORT INFORMATION
  Report Type: 
  Country: None (occurrence: None)
  Receive Date: 20070914
  Receipt Date: 20070904
  Transmission Date: 20080115
  Serious: Yes (Hospitalization, Other)
  Sender: FDA-Public Use
  Company Number: US-PFIZER INC-2007045301

PATIENT
  Sex: Female
  Weight: 46.3 kg

DRUGS (3)
  1. CHANTIX [Suspect]
     Indication: EX-SMOKER
     Dosage: FREQ:EVERY DAY
     Route: 048
     Dates: start: 20070501, end: 20070522
  2. EFFEXOR [Concomitant]
  3. VITAMINS [Concomitant]

REACTIONS (23)
  - ABASIA [None]
  - ABDOMINAL PAIN [None]
  - ABNORMAL DREAMS [None]
  - ACTIVITIES OF DAILY LIVING IMPAIRED [None]
  - BACTERIAL INFECTION [None]
  - BILIARY TRACT DISORDER [None]
  - CHEST PAIN [None]
  - CHOLECYSTITIS CHRONIC [None]
  - COLITIS [None]
  - CONSTIPATION [None]
  - DIARRHOEA [None]
  - DYSGEUSIA [None]
  - FLANK PAIN [None]
  - HELICOBACTER PYLORI IDENTIFICATION TEST POSITIVE [None]
  - HEPATIC STEATOSIS [None]
  - INFLAMMATORY BOWEL DISEASE [None]
  - INSOMNIA [None]
  - INTESTINAL ULCER [None]
  - MUSCLE TWITCHING [None]
  - TOOTH EXTRACTION [None]
  - TRICUSPID VALVE INCOMPETENCE [None]
  - UNEVALUABLE EVENT [None]
  - WEIGHT DECREASED [None]
